FAERS Safety Report 7716479-3 (Version None)
Quarter: 2011Q3

REPORT INFORMATION
  Report Type: 
  Country: None (occurrence: None)
  Receive Date: 20110829
  Receipt Date: 20110819
  Transmission Date: 20111222
  Serious: Yes (Hospitalization)
  Sender: FDA-Public Use
  Company Number: US-ASTRAZENECA-2011SE49827

PATIENT
  Age: 42 Year
  Sex: Female
  Weight: 108.9 kg

DRUGS (4)
  1. XANAX [Concomitant]
     Indication: ANXIETY
     Dosage: PRN
  2. SEROQUEL XR [Suspect]
     Indication: BIPOLAR DISORDER
     Route: 048
  3. SEROQUEL XR [Suspect]
     Route: 048
  4. XANAX [Concomitant]
     Indication: MANIA
     Dosage: PRN

REACTIONS (7)
  - GASTRIC BYPASS [None]
  - ABDOMINAL DISCOMFORT [None]
  - SOMNOLENCE [None]
  - NAUSEA [None]
  - ADVERSE EVENT [None]
  - DYSPHAGIA [None]
  - WRONG TECHNIQUE IN DRUG USAGE PROCESS [None]
